FAERS Safety Report 24382918 (Version 1)
Quarter: 2024Q4

REPORT INFORMATION
  Report Type: Spontaneous
  Country: CA (occurrence: CA)
  Receive Date: 20241001
  Receipt Date: 20241001
  Transmission Date: 20250114
  Serious: Yes (Hospitalization, Other)
  Sender: SANDOZ
  Company Number: CA-SANDOZ-SDZ2024CA083739

PATIENT
  Age: 77 Year
  Sex: Female
  Weight: 68 kg

DRUGS (1)
  1. ACLASTA [Suspect]
     Active Substance: ZOLEDRONIC ACID
     Indication: Osteoporosis
     Dosage: 1 DF, 1 EVERY 1 YEARS
     Route: 042

REACTIONS (1)
  - Osteonecrosis [Recovering/Resolving]
